FAERS Safety Report 8371945-5 (Version None)
Quarter: 2012Q2

REPORT INFORMATION
  Report Type: 
  Country: None (occurrence: None)
  Receive Date: 20120518
  Receipt Date: 20120510
  Transmission Date: 20120825
  Serious: Yes (Hospitalization, Disabling, Other)
  Sender: FDA-Public Use
  Company Number: US-MERCK-1111USA02615

PATIENT
  Age: 64 Year
  Sex: Female

DRUGS (3)
  1. FOSAMAX [Suspect]
     Indication: OSTEOPENIA
     Route: 048
     Dates: start: 20000101, end: 20080101
  2. HORMONES (UNSPECIFIED) [Concomitant]
     Route: 065
     Dates: start: 19990101, end: 20080101
  3. FOSAMAX [Suspect]
     Route: 048

REACTIONS (6)
  - ANGIOPATHY [None]
  - HYPERTENSION [None]
  - TOOTH DISORDER [None]
  - BLOOD CHOLESTEROL INCREASED [None]
  - FEMUR FRACTURE [None]
  - ASTHMA [None]
